FAERS Safety Report 16776119 (Version 1)
Quarter: 2019Q3

REPORT INFORMATION
  Report Type: Spontaneous
  Country: US (occurrence: US)
  Receive Date: 20190905
  Receipt Date: 20190905
  Transmission Date: 20191005
  Serious: No
  Sender: FDA-Public Use
  Company Number: US-BRISTOL-MYERS SQUIBB COMPANY-BMS-2019-086409

PATIENT
  Sex: Male

DRUGS (1)
  1. ELIQUIS [Suspect]
     Active Substance: APIXABAN
     Indication: PRODUCT USED FOR UNKNOWN INDICATION
     Dosage: UNK UNK, QD (WAS TO TAKE IT TWICE DAILY BUT HE WAS TAKING IT ONCE A DAY)
     Route: 065
     Dates: start: 20190830

REACTIONS (2)
  - Inappropriate schedule of product administration [Unknown]
  - Weight increased [Unknown]
